FAERS Safety Report 10383041 (Version 2)
Quarter: 2014Q3

REPORT INFORMATION
  Report Type: Spontaneous
  Country: US (occurrence: US)
  Receive Date: 20140813
  Receipt Date: 20140814
  Transmission Date: 20150326
  Serious: Yes (Hospitalization, Other)
  Sender: FDA-Public Use
  Company Number: US-SA-2014SA095870

PATIENT
  Age: 54 Year
  Sex: Female

DRUGS (2)
  1. FABRAZYME [Suspect]
     Active Substance: AGALSIDASE BETA
     Indication: FABRY^S DISEASE
     Route: 042
     Dates: start: 201307
  2. FABRAZYME [Suspect]
     Active Substance: AGALSIDASE BETA
     Indication: FABRY^S DISEASE
     Route: 042
     Dates: start: 201307

REACTIONS (4)
  - Bronchitis [Not Recovered/Not Resolved]
  - Lung lobectomy [Recovering/Resolving]
  - Scan abnormal [Not Recovered/Not Resolved]
  - Lymphadenectomy [Recovering/Resolving]

NARRATIVE: CASE EVENT DATE: 2014
